FAERS Safety Report 21601441 (Version 2)
Quarter: 2022Q4

REPORT INFORMATION
  Report Type: Spontaneous
  Country: US (occurrence: US)
  Receive Date: 20221116
  Receipt Date: 20221125
  Transmission Date: 20230113
  Serious: No
  Sender: FDA-Public Use
  Company Number: US-TAKEDA-2022TUS085496

PATIENT
  Sex: Male
  Weight: 96 kg

DRUGS (2)
  1. ADDERALL XR [Suspect]
     Active Substance: AMPHETAMINE ASPARTATE\AMPHETAMINE SULFATE\DEXTROAMPHETAMINE SACCHARATE\DEXTROAMPHETAMINE SULFATE
     Indication: Attention deficit hyperactivity disorder
     Dosage: 30 MILLIGRAM, QD
     Route: 065
     Dates: start: 1994
  2. MODAFINIL [Concomitant]
     Active Substance: MODAFINIL

REACTIONS (4)
  - Drug ineffective [Unknown]
  - Disturbance in attention [Unknown]
  - Frustration tolerance decreased [Unknown]
  - Insurance issue [Unknown]
